FAERS Safety Report 19042391 (Version 1)
Quarter: 2021Q1

REPORT INFORMATION
  Report Type: Spontaneous
  Country: US (occurrence: US)
  Receive Date: 20210322
  Receipt Date: 20210322
  Transmission Date: 20210420
  Serious: Yes (Other)
  Sender: FDA-Public Use
  Company Number: None

PATIENT
  Age: 73 Year
  Sex: Female
  Weight: 119.25 kg

DRUGS (19)
  1. IBRANCE [Suspect]
     Active Substance: PALBOCICLIB
     Indication: BREAST CANCER
     Dates: start: 20200618
  2. HUMALOG [Concomitant]
     Active Substance: INSULIN LISPRO
  3. KETOROLAC [Concomitant]
     Active Substance: KETOROLAC TROMETHAMINE
  4. LIDOCAINE. [Concomitant]
     Active Substance: LIDOCAINE
  5. TYLENOL [Concomitant]
     Active Substance: ACETAMINOPHEN
  6. ASPIRIN. [Concomitant]
     Active Substance: ASPIRIN
  7. METOCLOPRAMIDE. [Concomitant]
     Active Substance: METOCLOPRAMIDE
  8. TRADJENTA [Concomitant]
     Active Substance: LINAGLIPTIN
  9. MIRALAX [Concomitant]
     Active Substance: POLYETHYLENE GLYCOL 3350
  10. PRAVASTATIN. [Concomitant]
     Active Substance: PRAVASTATIN
  11. FUROSEMIDE. [Concomitant]
     Active Substance: FUROSEMIDE
  12. LANTUS [Concomitant]
     Active Substance: INSULIN GLARGINE
  13. SENNA [Concomitant]
     Active Substance: SENNA LEAF\SENNOSIDES\SENNOSIDES A AND B
  14. DEXTROSE. [Concomitant]
     Active Substance: DEXTROSE
  15. LOVENOX [Concomitant]
     Active Substance: ENOXAPARIN SODIUM
  16. GLUCAGON. [Concomitant]
     Active Substance: GLUCAGON
  17. BISACODYL. [Concomitant]
     Active Substance: BISACODYL
  18. LOSARTAN. [Concomitant]
     Active Substance: LOSARTAN
  19. ZOFRAN [Concomitant]
     Active Substance: ONDANSETRON HYDROCHLORIDE

REACTIONS (1)
  - Disease progression [None]

NARRATIVE: CASE EVENT DATE: 20210322
